FAERS Safety Report 10101960 (Version 1)
Quarter: 2014Q2

REPORT INFORMATION
  Report Type: Report from Study
  Country: US (occurrence: US)
  Receive Date: 20140424
  Receipt Date: 20140424
  Transmission Date: 20141212
  Serious: Yes (Other)
  Sender: FDA-Public Use
  Company Number: US-ALEXION PHARMACEUTICALS INC.-A200901258

PATIENT
  Sex: Female

DRUGS (1)
  1. SOLIRIS [Suspect]
     Indication: PAROXYSMAL NOCTURNAL HAEMOGLOBINURIA
     Dosage: UNK
     Route: 042

REACTIONS (6)
  - Cholecystectomy [Unknown]
  - Cardiomegaly [Unknown]
  - Hepatosplenomegaly [Unknown]
  - Lymphadenopathy [Unknown]
  - Biliary dilatation [Unknown]
  - Diverticulum intestinal [Unknown]
